FAERS Safety Report 5988371-6 (Version None)
Quarter: 2008Q4

REPORT INFORMATION
  Report Type: 
  Country: None (occurrence: None)
  Receive Date: 20081204
  Receipt Date: 20081124
  Transmission Date: 20090506
  Serious: Yes (Death, Hospitalization, Other)
  Sender: FDA-Public Use
  Company Number: 54697

PATIENT
  Age: 74 Year
  Sex: Male

DRUGS (1)
  1. CIPROFLOXACIN [Suspect]
     Indication: ENTEROBACTER PNEUMONIA

REACTIONS (8)
  - CANDIDIASIS [None]
  - FUNGAL PERITONITIS [None]
  - PANCREAS INFECTION [None]
  - PANCREATIC ABSCESS [None]
  - PANCREATIC PSEUDOCYST [None]
  - PNEUMONIA ESCHERICHIA [None]
  - PNEUMONIA STAPHYLOCOCCAL [None]
  - SEPTIC SHOCK [None]
